FAERS Safety Report 4567302-X (Version None)
Quarter: 2005Q1

REPORT INFORMATION
  Report Type: 
  Country: None (occurrence: None)
  Receive Date: 20050127
  Receipt Date: 20050114
  Transmission Date: 20050727
  Serious: Yes (Other)
  Sender: FDA-Public Use
  Company Number: 2005015038

PATIENT
  Age: 59 Year
  Sex: Male

DRUGS (14)
  1. CELEBREX [Suspect]
     Indication: ARTHRITIS
     Dosage: 100 MG (100 MG, 1 IN 1 D), ORAL
     Route: 048
  2. DOXAZOSIN MESYLATE [Concomitant]
  3. ENALAPRIL MALEATE [Concomitant]
  4. OMEPRAZOLE (OMEPRAZOKE) [Concomitant]
  5. ROSIGLITAZONE MALEATE [Concomitant]
  6. GLIPIZIDE [Concomitant]
  7. PROBENECID [Concomitant]
  8. METFORMIN HCL [Concomitant]
  9. ATORVASTATIN (ATORVASTATIN) [Concomitant]
  10. ONE-A-DY (ASCORBIC ACID, CYANOCOBALAMIN, ERGOCALCIFEROL, NICOTINAMIDE, [Concomitant]
  11. CYANOCOBALAMIN (CYANOCOBALAMIN) [Concomitant]
  12. FISH OILD (FISH OILD) [Concomitant]
  13. TOCOPHEROL (TOCOPHEROL) [Concomitant]
  14. IBUPROFEN [Concomitant]

REACTIONS (4)
  - ARTHRITIS [None]
  - CHOLECYSTECTOMY [None]
  - DISEASE RECURRENCE [None]
  - EXOSTOSIS [None]
